FAERS Safety Report 16985541 (Version 2)
Quarter: 2020Q1

REPORT INFORMATION
  Report Type: Spontaneous
  Country: FR (occurrence: FR)
  Receive Date: 20191101
  Receipt Date: 20200116
  Transmission Date: 20200409
  Serious: Yes (Other)
  Sender: FDA-Public Use
  Company Number: FR-PFIZER INC-2019464188

PATIENT
  Age: 62 Year
  Sex: Female
  Weight: 49 kg

DRUGS (10)
  1. METHYLPREDNISOLONE. [Suspect]
     Active Substance: METHYLPREDNISOLONE
     Indication: PROPHYLAXIS
     Dosage: 46 MG, 1X/DAY
     Route: 042
     Dates: end: 20190429
  2. CAELYX [Suspect]
     Active Substance: DOXORUBICIN HYDROCHLORIDE
     Indication: OVARIAN EPITHELIAL CANCER
     Dosage: 58 MG, CYCLIC
     Route: 042
     Dates: start: 20160426, end: 20190429
  3. ONDANSETRON [Suspect]
     Active Substance: ONDANSETRON
     Indication: PROPHYLAXIS
     Dosage: 8 MG, 1X/DAY
     Route: 042
     Dates: end: 20190429
  4. VASTAREL [Suspect]
     Active Substance: TRIMETAZIDINE DIHYDROCHLORIDE
     Dosage: 2 DF, 1X/DAY
     Route: 048
  5. YONDELIS [Suspect]
     Active Substance: TRABECTEDIN
     Indication: OVARIAN EPITHELIAL CANCER
     Dosage: UNK
     Route: 042
     Dates: start: 20160426, end: 20161031
  6. HYPERIUM [Suspect]
     Active Substance: RILMENIDINE PHOSPHATE
     Dosage: 1 DF, 1X/DAY
     Route: 048
  7. SECTRAL [Suspect]
     Active Substance: ACEBUTOLOL HYDROCHLORIDE
     Dosage: 1.5 DF, 1X/DAY
     Route: 048
  8. DRIPTANE [Suspect]
     Active Substance: OXYBUTYNIN
     Dosage: 1 DF, 1X/DAY
     Route: 048
  9. ENDOTELON [Suspect]
     Active Substance: HERBALS\VITIS VINIFERA LEAF
     Dosage: 2 DF, 1X/DAY
     Route: 048
  10. ZEJULA [Suspect]
     Active Substance: NIRAPARIB
     Indication: OVARIAN EPITHELIAL CANCER
     Dosage: UNK
     Route: 042
     Dates: start: 201901, end: 201903

REACTIONS (2)
  - Pancytopenia [Not Recovered/Not Resolved]
  - Myelodysplastic syndrome [Not Recovered/Not Resolved]

NARRATIVE: CASE EVENT DATE: 201907
